FAERS Safety Report 6826283-6 (Version None)
Quarter: 2010Q3

REPORT INFORMATION
  Report Type: 
  Country: None (occurrence: None)
  Receive Date: 20100709
  Receipt Date: 20100629
  Transmission Date: 20110219
  Serious: Yes (Other)
  Sender: FDA-Public Use
  Company Number: CA-PFIZER INC-2010081748

PATIENT
  Age: 38 Year
  Sex: Female

DRUGS (2)
  1. LYRICA [Suspect]
     Indication: FIBROMYALGIA
     Dosage: 75 MG, UNK
     Dates: start: 20100501
  2. CYMBALTA [Concomitant]
     Dosage: UNK
     Dates: start: 20100501

REACTIONS (4)
  - HYPOPHAGIA [None]
  - OEDEMA MOUTH [None]
  - ORAL PAIN [None]
  - PAINFUL RESPIRATION [None]
